FAERS Safety Report 15339237 (Version 1)
Quarter: 2018Q3

REPORT INFORMATION
  Report Type: Spontaneous
  Country: US (occurrence: US)
  Receive Date: 20180831
  Receipt Date: 20180831
  Transmission Date: 20181010
  Serious: No
  Sender: FDA-Public Use
  Company Number: US-RECKITT BENCKISER HEALTHCARE INT LIMITED-RB-97490-2017

PATIENT
  Age: 77 Year
  Sex: Female

DRUGS (1)
  1. MUCINEX D MAXIMUM STRENGTH [Suspect]
     Active Substance: GUAIFENESIN\PSEUDOEPHEDRINE HYDROCHLORIDE
     Indication: PRODUCT USED FOR UNKNOWN INDICATION
     Dosage: TOOK FIRST DOSE OF PRODUCT AND ACCIDENTALLY TOOK SECOND DOSE ABOUT 3 HOURS EARLIER THAN SHE SUPPOSED
     Route: 065
     Dates: start: 20170930

REACTIONS (1)
  - Accidental overdose [Unknown]

NARRATIVE: CASE EVENT DATE: 20170930
